FAERS Safety Report 9983427 (Version 1)
Quarter: 2014Q1

REPORT INFORMATION
  Report Type: Spontaneous
  Country: US (occurrence: US)
  Receive Date: 20140307
  Receipt Date: 20140307
  Transmission Date: 20141002
  Serious: No
  Sender: FDA-Public Use
  Company Number: US-BAYER-2014-035400

PATIENT
  Age: 58 Year
  Sex: Female
  Weight: 68.03 kg

DRUGS (2)
  1. ALEVE TABLET [Suspect]
     Dosage: 1 DF, PRN
     Route: 048
     Dates: start: 2013, end: 20140228
  2. MULTIVITAMIN [Concomitant]
     Dosage: UNK

REACTIONS (2)
  - Dysgeusia [Not Recovered/Not Resolved]
  - Tinnitus [Recovered/Resolved]
